FAERS Safety Report 21937048 (Version 1)
Quarter: 2023Q1

REPORT INFORMATION
  Report Type: Report from Study
  Country: ES (occurrence: ES)
  Receive Date: 20230201
  Receipt Date: 20230201
  Transmission Date: 20230417
  Serious: Yes (Other)
  Sender: FDA-Public Use
  Company Number: ES-MYLANLABS-2023M1009677

PATIENT
  Age: 47 Year
  Sex: Male
  Weight: 106 kg

DRUGS (5)
  1. SIMVASTATIN [Suspect]
     Active Substance: SIMVASTATIN
     Indication: Product used for unknown indication
     Dosage: 20 MILLIGRAM, QD (1 TABLET EVERY 24 H)
     Route: 065
  2. METFORMIN\SITAGLIPTIN [Suspect]
     Active Substance: METFORMIN\SITAGLIPTIN
     Indication: Product used for unknown indication
     Dosage: 1 DOSAGE FORM, BID, (Q 12 H)
     Route: 065
  3. BRIMONIDINE [Suspect]
     Active Substance: BRIMONIDINE TARTRATE
     Indication: Product used for unknown indication
     Dosage: 1 GTT DROPS, BID (1 DROP IN EACH EYE EVERY 12 H)
  4. DORZOLAMIDE HYDROCHLORIDE\TIMOLOL MALEATE [Suspect]
     Active Substance: DORZOLAMIDE HYDROCHLORIDE\TIMOLOL MALEATE
     Indication: Product used for unknown indication
     Dosage: 1 GTT DROPS,BID (1 DROP IN EACH EYE EVERY 12H)
  5. BIMATOPROST [Suspect]
     Active Substance: BIMATOPROST
     Indication: Product used for unknown indication
     Dosage: 1 DOSAGE FORM, BID (1 APPLICATION IN EACH EYE EVERY 12H)

REACTIONS (4)
  - Renal impairment [Unknown]
  - Hyperglycaemia [Unknown]
  - Lipids abnormal [Unknown]
  - Nocturia [Unknown]
